FAERS Safety Report 7151990-8 (Version None)
Quarter: 2010Q4

REPORT INFORMATION
  Report Type: 
  Country: None (occurrence: None)
  Receive Date: 20101211
  Receipt Date: 20101206
  Transmission Date: 20110411
  Serious: Yes (Death)
  Sender: FDA-Public Use
  Company Number: GB-PFIZER INC-2010164604

PATIENT
  Age: 77 Year
  Sex: Male

DRUGS (4)
  1. DEPO-MEDROL [Suspect]
     Indication: TRIGGER FINGER
     Dosage: 0.25ML/5MG
     Dates: start: 20091101
  2. WARFARIN SODIUM [Suspect]
     Dosage: UNK
  3. PARACETAMOL [Concomitant]
     Dosage: UNK
  4. CO-CODAMOL [Concomitant]
     Dosage: UNK

REACTIONS (1)
  - HAEMORRHAGE INTRACRANIAL [None]
